FAERS Safety Report 6715211-X (Version None)
Quarter: 2010Q2

REPORT INFORMATION
  Report Type: 
  Country: None (occurrence: None)
  Receive Date: 20100507
  Receipt Date: 20100427
  Transmission Date: 20101027
  Serious: Yes (Other)
  Sender: FDA-Public Use
  Company Number: GB-JNJFOC-20100300539

PATIENT
  Age: 12 Year
  Sex: Female

DRUGS (4)
  1. REMICADE [Suspect]
     Indication: INFLAMMATORY BOWEL DISEASE
     Route: 042
  2. CARBAMAZEPINE [Concomitant]
  3. HYDROCORTISONE [Concomitant]
     Indication: PREMEDICATION
  4. CHLORPHENAMINE [Concomitant]
     Indication: PREMEDICATION

REACTIONS (2)
  - HYPOKALAEMIA [None]
  - PROTHROMBIN TIME PROLONGED [None]
